FAERS Safety Report 13709815 (Version 1)
Quarter: 2017Q3

REPORT INFORMATION
  Report Type: Report from Study
  Country: US (occurrence: US)
  Receive Date: 20170703
  Receipt Date: 20170703
  Transmission Date: 20171127
  Serious: Yes (Hospitalization)
  Sender: FDA-Public Use
  Company Number: US-VIFOR (INTERNATIONAL) INC.-VIT-2017-07118

PATIENT
  Age: 68 Year
  Sex: Female

DRUGS (3)
  1. NORCO [Concomitant]
     Active Substance: ACETAMINOPHEN\HYDROCODONE BITARTRATE
  2. TOLTERODINE [Concomitant]
     Active Substance: TOLTERODINE
  3. VELTASSA [Suspect]
     Active Substance: PATIROMER
     Indication: HYPERKALAEMIA
     Route: 048
     Dates: start: 20161129

REACTIONS (1)
  - Chest pain [Recovering/Resolving]

NARRATIVE: CASE EVENT DATE: 20170620
